FAERS Safety Report 14272399 (Version 1)
Quarter: 2017Q4

REPORT INFORMATION
  Report Type: Spontaneous
  Country: GB (occurrence: GB)
  Receive Date: 20171211
  Receipt Date: 20171211
  Transmission Date: 20180321
  Serious: Yes (Other)
  Sender: FDA-Public Use
  Company Number: GB-GILEAD-2017-0309479

PATIENT
  Sex: Female

DRUGS (1)
  1. HARVONI [Suspect]
     Active Substance: LEDIPASVIR\SOFOSBUVIR
     Indication: HEPATITIS C
     Dosage: UNK
     Route: 065
     Dates: start: 2016

REACTIONS (5)
  - Hepatic fibrosis [Not Recovered/Not Resolved]
  - Inflammation [Unknown]
  - Vomiting [Unknown]
  - Headache [Unknown]
  - Immune system disorder [Unknown]
